FAERS Safety Report 24352924 (Version 2)
Quarter: 2024Q4

REPORT INFORMATION
  Report Type: Spontaneous
  Country: ES (occurrence: ES)
  Receive Date: 20240923
  Receipt Date: 20241007
  Transmission Date: 20250115
  Serious: Yes (Hospitalization)
  Sender: ELI LILLY AND CO
  Company Number: ES-MENARINI-ES-MEN-108605

PATIENT
  Age: 68 Year
  Sex: Male
  Weight: 90.6 kg

DRUGS (8)
  1. INSULIN GLARGINE [Suspect]
     Active Substance: INSULIN GLARGINE
     Indication: Type 2 diabetes mellitus
     Dosage: 34 MG, UNKNOWN
     Route: 058
  2. DEXKETOPROFEN TROMETAMOL [Suspect]
     Active Substance: DEXKETOPROFEN TROMETAMOL
     Indication: Pain
     Dosage: 25 MG, UNKNOWN
     Route: 048
  3. GLICLAZIDE [Suspect]
     Active Substance: GLICLAZIDE
     Indication: Type 2 diabetes mellitus
     Dosage: 60 MG, UNKNOWN
     Route: 048
  4. DAPAGLIFLOZIN PROPANEDIOL\METFORMIN HYDROCHLORIDE [Suspect]
     Active Substance: DAPAGLIFLOZIN PROPANEDIOL\METFORMIN HYDROCHLORIDE
     Indication: Type 2 diabetes mellitus
     Dosage: 1000 MG, UNKNOWN
     Route: 048
  5. ATORVASTATIN [Suspect]
     Active Substance: ATORVASTATIN
     Indication: Hypercholesterolaemia
     Dosage: 40 MG, UNKNOWN
     Route: 048
  6. JANUVIA [Suspect]
     Active Substance: SITAGLIPTIN PHOSPHATE
     Indication: Type 2 diabetes mellitus
     Dosage: 50 MG, UNKNOWN
     Route: 048
  7. BINIMETINIB;ENCORAFENIB [Concomitant]
     Indication: Malignant melanoma
     Dosage: 1 DOSAGE FORM, BID
     Route: 048
     Dates: start: 20230518, end: 20240829
  8. PEMBROLIZUMAB [Concomitant]
     Active Substance: PEMBROLIZUMAB
     Indication: Malignant melanoma
     Dosage: 200 MG, 3/W
     Route: 042
     Dates: start: 20230518, end: 20240829

REACTIONS (2)
  - Back pain [Recovering/Resolving]
  - Bone cancer [Unknown]

NARRATIVE: CASE EVENT DATE: 20240817
